FAERS Safety Report 7148735-4 (Version None)
Quarter: 2010Q4

REPORT INFORMATION
  Report Type: 
  Country: None (occurrence: None)
  Receive Date: 20101209
  Receipt Date: 20101203
  Transmission Date: 20110411
  Serious: Yes (Other)
  Sender: FDA-Public Use
  Company Number: DE-ROCHE-746731

PATIENT
  Age: 68 Year
  Sex: Female

DRUGS (1)
  1. HERCEPTIN [Suspect]
     Route: 065

REACTIONS (5)
  - ASTHENIA [None]
  - DECREASED APPETITE [None]
  - GAMMA-GLUTAMYLTRANSFERASE INCREASED [None]
  - MALAISE [None]
  - TRANSAMINASES INCREASED [None]
